FAERS Safety Report 5870323-8 (Version None)
Quarter: 2008Q3

REPORT INFORMATION
  Report Type: 
  Country: None (occurrence: None)
  Receive Date: 20080904
  Receipt Date: 20070912
  Transmission Date: 20090109
  Serious: No
  Sender: FDA-Public Use
  Company Number: US-BRISTOL-MYERS SQUIBB COMPANY-13906441

PATIENT
  Age: 49 Year
  Sex: Female
  Weight: 95 kg

DRUGS (1)
  1. DEFINITY [Suspect]
     Dosage: 1 DOSAGE FORM=1 CC.DEFINITY 1 VIAL DILUTED WITH 8.5-9 CC OF NORMAL SALINE.
     Route: 042
     Dates: start: 20070912, end: 20070912

REACTIONS (1)
  - MUSCLE SPASMS [None]
